FAERS Safety Report 19806195 (Version 1)
Quarter: 2021Q3

REPORT INFORMATION
  Report Type: Spontaneous
  Country: US (occurrence: US)
  Receive Date: 20210909
  Receipt Date: 20210909
  Transmission Date: 20211014
  Serious: No
  Sender: FDA-Public Use
  Company Number: US-CELLTRION INC.-2020US030671

PATIENT

DRUGS (1)
  1. INFLECTRA [Suspect]
     Active Substance: INFLIXIMAB-DYYB
     Indication: RHEUMATOID ARTHRITIS
     Dosage: 250MG EVERY 4 WEEKS; HAD THREE INFUSIONS, 250MG, EACH ONE WAS 100
     Route: 042
     Dates: start: 202006, end: 20200807

REACTIONS (1)
  - Drug ineffective [Unknown]
